FAERS Safety Report 4554809-4 (Version None)
Quarter: 2005Q1

REPORT INFORMATION
  Report Type: 
  Country: None (occurrence: None)
  Receive Date: 20041227
  Receipt Date: 20040521
  Transmission Date: 20050727
  Serious: Yes (Life-Threatening, Hospitalization)
  Sender: FDA-Public Use
  Company Number: 2004-0007094

PATIENT
  Age: 43 Year
  Sex: Female
  Weight: 48 kg

DRUGS (8)
  1. VIREAD [Suspect]
     Indication: HIV INFECTION
     Dosage: 300 MG, 1 IN 1 D, ORAL
     Route: 048
     Dates: start: 20040323, end: 20040515
  2. LORTAB [Concomitant]
  3. SUSTIVA [Concomitant]
  4. KALETRA [Concomitant]
  5. GEMFIBROZIL [Concomitant]
  6. NORTRIPTYLINE HCL [Concomitant]
  7. ATIVAN [Concomitant]
  8. IBUPROFEN [Concomitant]

REACTIONS (1)
  - RENAL FAILURE ACUTE [None]
